FAERS Safety Report 24094114 (Version 1)
Quarter: 2024Q3

REPORT INFORMATION
  Report Type: Spontaneous
  Country: US (occurrence: US)
  Receive Date: 20240716
  Receipt Date: 20240716
  Transmission Date: 20241017
  Serious: No
  Sender: SANOFI AVENTIS
  Company Number: US-SA-SAC20240710000727

PATIENT
  Age: 12 Year
  Sex: Female

DRUGS (2)
  1. DUPIXENT [Suspect]
     Active Substance: DUPILUMAB
     Indication: Eczema
     Dosage: 400 GM 1X
     Route: 058
     Dates: start: 202404, end: 202404
  2. DUPIXENT [Suspect]
     Active Substance: DUPILUMAB
     Dosage: 200MG QOW
     Route: 058
     Dates: start: 20240601, end: 20240602

REACTIONS (5)
  - Headache [Not Recovered/Not Resolved]
  - Rash [Recovered/Resolved]
  - Pain in extremity [Recovering/Resolving]
  - Arthralgia [Recovering/Resolving]
  - Laboratory test abnormal [Unknown]

NARRATIVE: CASE EVENT DATE: 20240101
